FAERS Safety Report 9913291 (Version 1)
Quarter: 2014Q1

REPORT INFORMATION
  Report Type: Spontaneous
  Country: US (occurrence: None)
  Receive Date: 20140214
  Receipt Date: 20140214
  Transmission Date: 20141002
  Serious: Yes (Other)
  Sender: FDA-Public Use
  Company Number: 2013AP008886

PATIENT
  Age: 50 Year
  Sex: Female

DRUGS (1)
  1. CIPROFLOXACIN TABLETS, USP [Suspect]
     Indication: CYSTITIS

REACTIONS (2)
  - Bone marrow failure [None]
  - Oesophageal candidiasis [None]
